FAERS Safety Report 5140352-0 (Version None)
Quarter: 2006Q4

REPORT INFORMATION
  Report Type: 
  Country: None (occurrence: None)
  Receive Date: 20061024
  Receipt Date: 20061011
  Transmission Date: 20070319
  Serious: Yes (Death, Hospitalization, Other)
  Sender: FDA-Public Use
  Company Number: US200610001925

PATIENT
  Age: 66 Year
  Sex: Female

DRUGS (2)
  1. HUMALOG [Suspect]
     Indication: DIABETES MELLITUS
  2. ENBREL [Concomitant]

REACTIONS (7)
  - ARTHROPOD BITE [None]
  - FURUNCLE [None]
  - HERPES ZOSTER [None]
  - LEG AMPUTATION [None]
  - LYME DISEASE [None]
  - PNEUMONIA [None]
  - RHEUMATOID ARTHRITIS [None]
